FAERS Safety Report 20687567 (Version 1)
Quarter: 2022Q2

REPORT INFORMATION
  Report Type: Spontaneous
  Country: US (occurrence: US)
  Receive Date: 20220408
  Receipt Date: 20220408
  Transmission Date: 20220721
  Serious: Yes (Other)
  Sender: FDA-Public Use
  Company Number: US-SA-SAC20220406001699

PATIENT
  Age: 63 Year
  Sex: Female

DRUGS (1)
  1. ZANTAC [Suspect]
     Active Substance: RANITIDINE HYDROCHLORIDE
     Indication: Dyspepsia
     Dosage: UNK, FREQUENCY: PERIODS OF NON-USE
     Dates: start: 198501, end: 200201

REACTIONS (1)
  - Lung carcinoma cell type unspecified stage II [Not Recovered/Not Resolved]

NARRATIVE: CASE EVENT DATE: 20170601
